FAERS Safety Report 5130746-1 (Version None)
Quarter: 2006Q4

REPORT INFORMATION
  Report Type: 
  Country: None (occurrence: None)
  Receive Date: 20061017
  Receipt Date: 20061017
  Transmission Date: 20070319
  Serious: Yes (Hospitalization)
  Sender: FDA-Public Use
  Company Number: None

PATIENT
  Sex: Male
  Weight: 196 kg

DRUGS (2)
  1. HEPARIN [Suspect]
     Indication: ATRIAL FIBRILLATION
     Dosage: 25000 UNITS/500 ML 20ML/HR IV
     Route: 042
     Dates: start: 20061010, end: 20061011
  2. LOVENOX [Suspect]
     Indication: ATRIAL FIBRILLATION
     Dosage: 160 MG Q12H SC
     Route: 058
     Dates: start: 20061008, end: 20061010

REACTIONS (1)
  - EPISTAXIS [None]
